FAERS Safety Report 4732449-1 (Version None)
Quarter: 2005Q3

REPORT INFORMATION
  Report Type: 
  Country: None (occurrence: None)
  Receive Date: 20050801
  Receipt Date: 20050715
  Transmission Date: 20060218
  Serious: Yes (Other)
  Sender: FDA-Public Use
  Company Number: 2005BL004324

PATIENT
  Age: 34 Year
  Sex: Female

DRUGS (5)
  1. NEOMYCIN AND POLYMYXIN B SULFATES AND HYDROCORTISONE OTIC SUSPENSION U [Suspect]
     Indication: EAR INFECTION
     Dosage: SEE IMAGE, TOPICAL
     Route: 061
     Dates: start: 20020508, end: 20020601
  2. NEOMYCIN AND POLYMYXIN B SULFATES AND HYDROCORTISONE OTIC SUSPENSION U [Suspect]
     Indication: EAR INFECTION
     Dosage: SEE IMAGE, TOPICAL
     Route: 061
     Dates: start: 20020602, end: 20020730
  3. NEOMYCIN AND POLYMYXIN B SULFATES AND HYDROCORTISONE OTIC SUSPENSION U [Suspect]
     Indication: EAR INFECTION
     Dosage: SEE IMAGE, TOPICAL
     Route: 061
     Dates: start: 20020731, end: 20020803
  4. NEOMYCIN AND POLYMYXIN B SULFATES AND HYDROCORTISONE OTIC SUSPENSION U [Suspect]
  5. FLOXIN OTIC [Suspect]
     Dosage: TOPICAL
     Route: 061
     Dates: start: 20020425, end: 20020508

REACTIONS (15)
  - DEAFNESS [None]
  - DRUG INTERACTION [None]
  - EAR INFECTION [None]
  - FACIAL PALSY [None]
  - GRAFT COMPLICATION [None]
  - IATROGENIC INJURY [None]
  - INFECTION [None]
  - MASTOIDITIS [None]
  - OTOTOXICITY [None]
  - PAIN [None]
  - PALLOR [None]
  - PRURITUS [None]
  - TINNITUS [None]
  - TYMPANIC MEMBRANE PERFORATION [None]
  - VERTIGO [None]
